FAERS Safety Report 25033124 (Version 1)
Quarter: 2025Q1

REPORT INFORMATION
  Report Type: Spontaneous
  Country: US (occurrence: US)
  Receive Date: 20250303
  Receipt Date: 20250303
  Transmission Date: 20250409
  Serious: No
  Sender: NOVO NORDISK
  Company Number: US-NOVOPROD-1308486

PATIENT
  Age: 38 Year
  Sex: Male

DRUGS (1)
  1. SAXENDA [Suspect]
     Active Substance: LIRAGLUTIDE
     Indication: Weight control
     Dosage: 1.8 ONCE DAILY
     Route: 058
     Dates: start: 20240729

REACTIONS (2)
  - Nasal congestion [Not Recovered/Not Resolved]
  - Lacrimation increased [Not Recovered/Not Resolved]

NARRATIVE: CASE EVENT DATE: 20240805
